FAERS Safety Report 6038103-0 (Version None)
Quarter: 2009Q1

REPORT INFORMATION
  Report Type: 
  Country: None (occurrence: None)
  Receive Date: 20090115
  Receipt Date: 20080730
  Transmission Date: 20090719
  Serious: Yes (Life-Threatening, Hospitalization)
  Sender: FDA-Public Use
  Company Number: FR-NOVOPROD-278032

PATIENT
  Sex: Female
  Weight: 88 kg

DRUGS (7)
  1. NOVONORM [Suspect]
     Indication: DIABETES MELLITUS
     Dosage: UNKNOWN
     Dates: end: 20080730
  2. METFORMIN HCL [Concomitant]
     Indication: DRUG USE FOR UNKNOWN INDICATION
     Dosage: UNKNOWN
  3. COAPROVEL [Concomitant]
     Dosage: UNKNOWN
  4. CHRONADALATE [Concomitant]
     Dosage: UNKNOWN
  5. CLONAZEPAM [Concomitant]
     Dosage: UNKNOWN
     Dates: start: 20080401
  6. EFFERALGAN                         /00020001/ [Concomitant]
     Dosage: UNKNOWN
  7. NOVORAPID PENFILL [Concomitant]
     Dosage: UNKNOWN

REACTIONS (1)
  - SHOCK HYPOGLYCAEMIC [None]
